FAERS Safety Report 8868777 (Version 1)
Quarter: 2012Q4

REPORT INFORMATION
  Report Type: 
  Country: US (occurrence: US)
  Receive Date: 20121026
  Receipt Date: 20121026
  Transmission Date: 20130627
  Serious: No
  Sender: FDA-Public Use
  Company Number: US-AMGEN-USASP2012047448

PATIENT
  Age: 64 Year
  Sex: Female
  Weight: 99 kg

DRUGS (12)
  1. ENBREL [Suspect]
     Indication: PRODUCT USED FOR UNKNOWN INDICATION
     Dosage: 50 mg, qwk
     Route: 058
  2. BONIVA [Concomitant]
     Dosage: 2.5 mg, UNK
  3. ZOCOR [Concomitant]
     Dosage: 40 mg, UNK
  4. PLAQUENIL                          /00072602/ [Concomitant]
     Dosage: 200 mg, UNK
  5. DIFLUNISAL [Concomitant]
     Dosage: 500 mg, UNK
  6. LISINOPRIL + HIDROCLOROTIAZIDA [Concomitant]
     Dosage: 20-25Mg
  7. FOLIC ACID [Concomitant]
     Dosage: 1 mg, UNK
  8. POT.CHLOR.AJINOMOT [Concomitant]
     Dosage: 10MEQ
  9. LEXAPRO [Concomitant]
     Dosage: 10 mg, UNK
  10. MULTIVITAMIN                       /00097801/ [Concomitant]
     Dosage: UNK
  11. VITAMIN D3 [Concomitant]
     Dosage: 100O UNIT
  12. CALCIUM D                          /00944201/ [Concomitant]
     Dosage: UNK

REACTIONS (2)
  - Cystitis [Recovered/Resolved]
  - Injection site pain [Unknown]
